FAERS Safety Report 8935682 (Version 2)
Quarter: 2014Q1

REPORT INFORMATION
  Report Type: Report from Study
  Country: IN (occurrence: IN)
  Receive Date: 20121130
  Receipt Date: 20140122
  Transmission Date: 20141002
  Serious: Yes (Other)
  Sender: FDA-Public Use
  Company Number: PHHY2012IN104053

PATIENT
  Age: 71 Year
  Sex: Female

DRUGS (2)
  1. ACLASTA [Suspect]
     Indication: OSTEOPOROSIS
     Dosage: 5 MG / 100 ML, YEARLY
     Route: 042
     Dates: start: 20120723
  2. ACLASTA [Suspect]
     Dosage: 5 MG / 100 ML, YEARLY
     Route: 042
     Dates: start: 20130111

REACTIONS (8)
  - Hip fracture [Unknown]
  - Accident [Unknown]
  - Lower limb fracture [Recovered/Resolved]
  - Upper limb fracture [Recovered/Resolved]
  - Fall [Recovered/Resolved]
  - Inappropriate schedule of drug administration [Unknown]
  - Nasopharyngitis [Unknown]
  - Pyrexia [Unknown]
